FAERS Safety Report 6910238-7 (Version None)
Quarter: 2010Q3

REPORT INFORMATION
  Report Type: 
  Country: None (occurrence: None)
  Receive Date: 20100806
  Receipt Date: 20100706
  Transmission Date: 20110219
  Serious: No
  Sender: FDA-Public Use
  Company Number: US-BAYER-201017866BCC

PATIENT
  Age: 49 Year
  Sex: Male
  Weight: 95 kg

DRUGS (3)
  1. ALEVE [Suspect]
     Indication: BACK PAIN
     Dosage: BOTTLE COUNT 100S
     Route: 048
     Dates: start: 20100501
  2. ALEVE [Suspect]
     Dosage: BOTTLE COUNT 50S
     Route: 048
     Dates: start: 20100501
  3. ALEVE [Suspect]
     Indication: BACK PAIN
     Dosage: BOTTLE COUNT 80S
     Route: 048

REACTIONS (2)
  - BACK PAIN [None]
  - NO ADVERSE EVENT [None]
